FAERS Safety Report 24564586 (Version 1)
Quarter: 2024Q4

REPORT INFORMATION
  Report Type: Spontaneous
  Country: US (occurrence: US)
  Receive Date: 20241030
  Receipt Date: 20241030
  Transmission Date: 20250115
  Serious: Yes (Death, Hospitalization, Other)
  Sender: APOTEX
  Company Number: US-APOTEX-2024AP017023

PATIENT
  Age: 14 Year
  Sex: Female

DRUGS (1)
  1. BUPROPION [Suspect]
     Active Substance: BUPROPION
     Indication: Product used for unknown indication
     Dosage: UNK
     Route: 065

REACTIONS (11)
  - Cardiac arrest [Fatal]
  - Coma [Fatal]
  - Depressed level of consciousness [Fatal]
  - Electrocardiogram QRS complex prolonged [Fatal]
  - Respiratory depression [Fatal]
  - Hypotension [Fatal]
  - Metabolic acidosis [Fatal]
  - Hyperreflexia [Fatal]
  - Clonus [Fatal]
  - Tremor [Fatal]
  - Toxicity to various agents [Fatal]
